FAERS Safety Report 15988539 (Version 1)
Quarter: 2019Q1

REPORT INFORMATION
  Report Type: Spontaneous
  Country: GB (occurrence: GB)
  Receive Date: 20190221
  Receipt Date: 20190221
  Transmission Date: 20190418
  Serious: Yes (Life-Threatening, Hospitalization)
  Sender: FDA-Public Use
  Company Number: GB-TEVA-2019-GB-1013811

PATIENT
  Age: 11 Year
  Sex: Male
  Weight: 33 kg

DRUGS (7)
  1. COTRIMOXAZOLE [Concomitant]
     Active Substance: SULFAMETHOXAZOLE\TRIMETHOPRIM
  2. VINCRISTINE SULFATE. [Concomitant]
     Active Substance: VINCRISTINE SULFATE
  3. ONDANSETRON [Concomitant]
     Active Substance: ONDANSETRON
  4. ETOPOSIDE. [Concomitant]
     Active Substance: ETOPOSIDE
  5. RANITIDINE. [Concomitant]
     Active Substance: RANITIDINE
  6. DOXORUBICIN [Suspect]
     Active Substance: DOXORUBICIN
     Indication: HODGKIN^S DISEASE
     Route: 042
     Dates: start: 20190123, end: 20190123
  7. PREDNISOLONE. [Concomitant]
     Active Substance: PREDNISOLONE

REACTIONS (1)
  - Supraventricular tachycardia [Recovered/Resolved]

NARRATIVE: CASE EVENT DATE: 20190123
